FAERS Safety Report 6831251-4 (Version None)
Quarter: 2010Q3

REPORT INFORMATION
  Report Type: 
  Country: None (occurrence: None)
  Receive Date: 20100712
  Receipt Date: 20100701
  Transmission Date: 20110219
  Serious: Yes (Other)
  Sender: FDA-Public Use
  Company Number: DE-JNJFOC-20100601391

PATIENT
  Sex: Female

DRUGS (7)
  1. TOPAMAX [Suspect]
     Indication: PRODUCT USED FOR UNKNOWN INDICATION
     Route: 048
  2. VITAMIN C [Interacting]
     Indication: PRODUCT USED FOR UNKNOWN INDICATION
     Route: 042
  3. TEMOZOLOMIDE [Concomitant]
     Route: 065
  4. TEMODAL [Concomitant]
     Route: 065
  5. HYDROXYUREA [Concomitant]
     Route: 065
  6. LYRICA [Concomitant]
     Route: 065
  7. SELEN [Concomitant]
     Route: 065

REACTIONS (2)
  - DRUG INTERACTION [None]
  - EPILEPSY [None]
